FAERS Safety Report 10196701 (Version 1)
Quarter: 2014Q2

REPORT INFORMATION
  Report Type: Spontaneous
  Country: US (occurrence: None)
  Receive Date: 20140523
  Receipt Date: 20140523
  Transmission Date: 20141212
  Serious: Yes (Other)
  Sender: FDA-Public Use
  Company Number: None

PATIENT
  Age: 76 Year
  Sex: Female
  Weight: 67.13 kg

DRUGS (7)
  1. AFINITOR [Suspect]
     Indication: RENAL CANCER
     Dosage: ONE TABLET, QD, ORAL
     Route: 048
  2. FELODIPINE [Concomitant]
  3. HYDRALAZINE [Concomitant]
  4. HYDROCHLOROTHIAZIDE [Concomitant]
  5. NORCO [Concomitant]
  6. LISINOPRIL [Concomitant]
  7. OMEPRAZOLE [Concomitant]

REACTIONS (1)
  - Angioedema [None]
